FAERS Safety Report 16548689 (Version 1)
Quarter: 2019Q3

REPORT INFORMATION
  Report Type: Spontaneous
  Country: ES (occurrence: ES)
  Receive Date: 20190709
  Receipt Date: 20190709
  Transmission Date: 20191004
  Serious: Yes (Hospitalization)
  Sender: FDA-Public Use
  Company Number: ES-VERTEX PHARMACEUTICALS-2019-006204

PATIENT
  Age: 40 Year
  Sex: Female

DRUGS (1)
  1. ORKAMBI [Suspect]
     Active Substance: IVACAFTOR\LUMACAFTOR
     Indication: CYSTIC FIBROSIS
     Dosage: UNK
     Route: 048
     Dates: start: 2019, end: 2019

REACTIONS (3)
  - Asthenia [Unknown]
  - Systemic bacterial infection [Recovered/Resolved]
  - Sputum increased [Unknown]

NARRATIVE: CASE EVENT DATE: 2019
